FAERS Safety Report 17864010 (Version 1)
Quarter: 2020Q2

REPORT INFORMATION
  Report Type: Spontaneous
  Country: CA (occurrence: CA)
  Receive Date: 20200605
  Receipt Date: 20200605
  Transmission Date: 20200714
  Serious: Yes (Other)
  Sender: FDA-Public Use
  Company Number: CA-ROCHE-2612689

PATIENT
  Age: 65 Year
  Sex: Female

DRUGS (6)
  1. VINORELBINE TARTRATE. [Suspect]
     Active Substance: VINORELBINE TARTRATE
     Indication: HER2 POSITIVE BREAST CANCER
     Route: 042
  2. XELODA [Suspect]
     Active Substance: CAPECITABINE
     Indication: HER2 POSITIVE BREAST CANCER
     Route: 048
  3. KADCYLA [Suspect]
     Active Substance: ADO-TRASTUZUMAB EMTANSINE
     Indication: HER2 POSITIVE BREAST CANCER
     Route: 042
  4. TAXOL [Suspect]
     Active Substance: PACLITAXEL
     Indication: HER2 POSITIVE BREAST CANCER
     Route: 042
  5. TRASTUZUMAB. [Suspect]
     Active Substance: TRASTUZUMAB
     Indication: HER2 POSITIVE BREAST CANCER
     Route: 042
  6. OXAZEPAM. [Concomitant]
     Active Substance: OXAZEPAM

REACTIONS (15)
  - Decreased appetite [Not Recovered/Not Resolved]
  - Nausea [Not Recovered/Not Resolved]
  - Hypoaesthesia [Not Recovered/Not Resolved]
  - Gait disturbance [Not Recovered/Not Resolved]
  - Peripheral swelling [Not Recovered/Not Resolved]
  - Dyspnoea [Not Recovered/Not Resolved]
  - Sleep disorder [Not Recovered/Not Resolved]
  - Constipation [Not Recovered/Not Resolved]
  - Nasopharyngitis [Not Recovered/Not Resolved]
  - Pain [Not Recovered/Not Resolved]
  - Vertigo [Not Recovered/Not Resolved]
  - Dizziness [Not Recovered/Not Resolved]
  - Headache [Not Recovered/Not Resolved]
  - Fatigue [Not Recovered/Not Resolved]
  - Neck pain [Not Recovered/Not Resolved]
